FAERS Safety Report 19857359 (Version 1)
Quarter: 2021Q3

REPORT INFORMATION
  Report Type: Spontaneous
  Country: US (occurrence: US)
  Receive Date: 20210921
  Receipt Date: 20210921
  Transmission Date: 20211014
  Serious: Yes (Other)
  Sender: FDA-Public Use
  Company Number: US-JNJFOC-20210913353

PATIENT
  Sex: Male

DRUGS (3)
  1. NEUTROGENA BEACH DEFENSE WATER PLUS SUN PROTECTION SUNSCREEN BROAD SPECTRUM SPF 30 [Suspect]
     Active Substance: AVOBENZONE\HOMOSALATE\OCTISALATE\OCTOCRYLENE
     Indication: PROPHYLAXIS AGAINST SOLAR RADIATION
     Dosage: USED SEVERAL TIMES A WEEK AND UP TO ONCE DAILY, INCREASED HIS USAGE UP TO THREE TIMES DAILY
     Route: 061
  2. NEUTROGENA ULTRA SHEER BODY MIST SUNSCREEN BROAD SPECTRUM SPF 100 PLUS [Suspect]
     Active Substance: AVOBENZONE\HOMOSALATE\OCTISALATE\OCTOCRYLENE\OXYBENZONE
     Indication: PROPHYLAXIS AGAINST SOLAR RADIATION
     Dosage: USED SEVERAL TIMES A WEEK AND UP TO ONCE DAILY, INCREASED HIS USAGE UP TO THREE TIMES DAILY
     Route: 061
  3. NEUTROGENA BEACH DEFENSE WATER AND SUN PROTECTION SUNSCREEN BROAD SPECTRUM SPF 70 [Suspect]
     Active Substance: AVOBENZONE\HOMOSALATE\OCTISALATE\OCTOCRYLENE
     Indication: PROPHYLAXIS AGAINST SOLAR RADIATION
     Dosage: USED SEVERAL TIMES A WEEK AND UP TO ONCE DAILY, INCREASED HIS USAGE UP TO THREE TIMES DAILY
     Route: 061

REACTIONS (2)
  - Exposure to toxic agent [Unknown]
  - Atrial fibrillation [Unknown]
